FAERS Safety Report 21145673 (Version 3)
Quarter: 2022Q4

REPORT INFORMATION
  Report Type: Spontaneous
  Country: US (occurrence: US)
  Receive Date: 20220729
  Receipt Date: 20221203
  Transmission Date: 20230113
  Serious: No
  Sender: FDA-Public Use
  Company Number: US-NOVARTISTESTPH-NVSC2022US171050

PATIENT
  Sex: Female

DRUGS (1)
  1. COSENTYX [Suspect]
     Active Substance: SECUKINUMAB
     Indication: Ankylosing spondylitis
     Dosage: 150 MG, QMO
     Route: 058
     Dates: start: 202205

REACTIONS (4)
  - Musculoskeletal stiffness [Recovering/Resolving]
  - Neuralgia [Not Recovered/Not Resolved]
  - Injection site bruising [Recovered/Resolved]
  - Pain [Not Recovered/Not Resolved]
